FAERS Safety Report 10688040 (Version 1)
Quarter: 2015Q1

REPORT INFORMATION
  Report Type: Spontaneous
  Country: SG (occurrence: SG)
  Receive Date: 20150102
  Receipt Date: 20150102
  Transmission Date: 20150720
  Serious: Yes (Other)
  Sender: FDA-Public Use
  Company Number: SG-BAYER-2015-000237

PATIENT
  Age: 24 Year
  Sex: Male

DRUGS (1)
  1. ACETYLSALICYLIC ACID (} 100 MG) [Suspect]
     Active Substance: ASPIRIN

REACTIONS (2)
  - Periorbital oedema [Unknown]
  - Rash [Unknown]

NARRATIVE: CASE EVENT DATE: 20110101
